FAERS Safety Report 12581811 (Version 2)
Quarter: 2017Q4

REPORT INFORMATION
  Report Type: Spontaneous
  Country: US (occurrence: US)
  Receive Date: 20160722
  Receipt Date: 20171129
  Transmission Date: 20180320
  Serious: Yes (Other)
  Sender: FDA-Public Use
  Company Number: US-BIOCOMPATIBLES UK LTD-BTG00776

PATIENT

DRUGS (3)
  1. LEUCOVORIN CALCIUM. [Concomitant]
     Active Substance: LEUCOVORIN CALCIUM
     Indication: ACUTE KIDNEY INJURY
     Dosage: UNK
  2. METHOTREXATE SODIUM. [Concomitant]
     Active Substance: METHOTREXATE SODIUM
     Indication: ACUTE LYMPHOCYTIC LEUKAEMIA
     Dosage: CYCLE 4 OF HIGH DOSE THERAPY
  3. VORAXAZE [Suspect]
     Active Substance: GLUCARPIDASE
     Indication: ACUTE KIDNEY INJURY
     Dosage: 50 UNITS/KG, UNK

REACTIONS (1)
  - Rebound effect [Recovered/Resolved]
